FAERS Safety Report 20984897 (Version 1)
Quarter: 2022Q2

REPORT INFORMATION
  Report Type: Spontaneous
  Country: US (occurrence: None)
  Receive Date: 20220621
  Receipt Date: 20220621
  Transmission Date: 20220721
  Serious: No
  Sender: FDA-Public Use
  Company Number: US-ROCHE-2939172

PATIENT
  Sex: Female

DRUGS (12)
  1. XELODA [Suspect]
     Active Substance: CAPECITABINE
     Indication: Breast cancer female
     Dosage: TAKE 2 TABLET BY MOUTH TWICE A DAY FOR TWO WEEKS WITH A 1 WEEK BREAK
     Route: 048
     Dates: start: 202110
  2. ASPIRIN [Concomitant]
     Active Substance: ASPIRIN
  3. CHLORPROMAZINE [Concomitant]
     Active Substance: CHLORPROMAZINE
  4. FLONASE ALLERGY RELIEF [Concomitant]
     Active Substance: FLUTICASONE PROPIONATE
  5. FOLIC ACID [Concomitant]
     Active Substance: FOLIC ACID
  6. IRON [Concomitant]
     Active Substance: IRON
  7. LEVOTHYROXINE [Concomitant]
     Active Substance: LEVOTHYROXINE
  8. MECLIZINE HYDROCHLORIDE [Concomitant]
     Active Substance: MECLIZINE HYDROCHLORIDE
  9. MONTELUKAST [Concomitant]
     Active Substance: MONTELUKAST SODIUM
  10. OMEPRAZOLE [Concomitant]
     Active Substance: OMEPRAZOLE
  11. ONDANSETRON [Concomitant]
     Active Substance: ONDANSETRON
  12. PROMETHAZINE [Concomitant]
     Active Substance: PROMETHAZINE HYDROCHLORIDE

REACTIONS (4)
  - Paraesthesia [Not Recovered/Not Resolved]
  - Mood swings [Not Recovered/Not Resolved]
  - Thyroid disorder [Not Recovered/Not Resolved]
  - Drug level decreased [Not Recovered/Not Resolved]
